FAERS Safety Report 4791611-2 (Version None)
Quarter: 2005Q4

REPORT INFORMATION
  Report Type: 
  Country: None (occurrence: None)
  Receive Date: 20051007
  Receipt Date: 20050623
  Transmission Date: 20060501
  Serious: Yes (Other)
  Sender: FDA-Public Use
  Company Number: US-BRISTOL-MYERS SQUIBB COMPANY-13015631

PATIENT

DRUGS (1)
  1. AVAPRO [Suspect]

REACTIONS (1)
  - RENIN INCREASED [None]
